FAERS Safety Report 11823507 (Version 2)
Quarter: 2015Q4

REPORT INFORMATION
  Report Type: Spontaneous
  Country: US (occurrence: US)
  Receive Date: 20151210
  Receipt Date: 20151229
  Transmission Date: 20160305
  Serious: No
  Sender: FDA-Public Use
  Company Number: CHPA2015US014721

PATIENT
  Age: 78 Year
  Sex: Female

DRUGS (2)
  1. VOLTAREN [Suspect]
     Active Substance: DICLOFENAC SODIUM
     Indication: MYALGIA
     Dosage: 1 TO 2 G, TID
     Route: 061
     Dates: start: 201512
  2. VOLTAREN [Suspect]
     Active Substance: DICLOFENAC SODIUM
     Dosage: 1 TO 2 G, ONCE/SINGLE
     Route: 061
     Dates: start: 20151207, end: 20151207

REACTIONS (5)
  - Drug administered at inappropriate site [Unknown]
  - Burning sensation [Recovered/Resolved]
  - Rash papular [Recovered/Resolved]
  - Inappropriate schedule of drug administration [Unknown]
  - Drug ineffective for unapproved indication [Unknown]

NARRATIVE: CASE EVENT DATE: 20151207
